FAERS Safety Report 7809822-8 (Version None)
Quarter: 2011Q4

REPORT INFORMATION
  Report Type: 
  Country: None (occurrence: None)
  Receive Date: 20111012
  Receipt Date: 20111007
  Transmission Date: 20120403
  Serious: Yes (Other)
  Sender: FDA-Public Use
  Company Number: US-PFIZER INC-2011240214

PATIENT
  Sex: Male
  Weight: 88.435 kg

DRUGS (5)
  1. WARFARIN SODIUM [Concomitant]
     Indication: DEEP VEIN THROMBOSIS
  2. FOSAMAX [Concomitant]
     Indication: SUPPLEMENTATION THERAPY
     Dosage: UNK
     Route: 048
  3. WARFARIN SODIUM [Concomitant]
     Indication: PULMONARY EMBOLISM
     Dosage: UNK
     Route: 048
  4. SUTENT [Suspect]
     Indication: METASTATIC RENAL CELL CARCINOMA
     Dosage: 50 MG, 1X/DAY
     Route: 048
     Dates: start: 20070104
  5. LEVOTHROID [Concomitant]
     Indication: THYROID DISORDER
     Dosage: UNK
     Route: 048

REACTIONS (3)
  - PAIN [None]
  - OSTEONECROSIS [None]
  - BLOOD CREATININE INCREASED [None]
